FAERS Safety Report 10172442 (Version 3)
Quarter: 2014Q3

REPORT INFORMATION
  Report Type: Spontaneous
  Country: US (occurrence: US)
  Receive Date: 20140515
  Receipt Date: 20140804
  Transmission Date: 20150326
  Serious: Yes (Hospitalization)
  Sender: FDA-Public Use
  Company Number: US-BAYER-2014-070500

PATIENT
  Age: 38 Year
  Sex: Female

DRUGS (7)
  1. ELAVIL [Concomitant]
     Active Substance: AMITRIPTYLINE HYDROCHLORIDE
     Indication: PAIN
  2. SOMA [Concomitant]
     Active Substance: CARISOPRODOL
     Indication: SLEEP DISORDER
     Dosage: UNK
     Dates: start: 2008
  3. HYDROCODONE [Concomitant]
     Active Substance: HYDROCODONE
     Indication: ANXIETY
  4. ELAVIL [Concomitant]
     Active Substance: AMITRIPTYLINE HYDROCHLORIDE
     Indication: SLEEP DISORDER
     Dosage: UNK
     Dates: start: 2008
  5. MIRENA [Suspect]
     Active Substance: LEVONORGESTREL
     Indication: CONTRACEPTION
     Dosage: 20 MCG/24HR, CONT
     Route: 015
     Dates: start: 20101227, end: 20131220
  6. SOMA [Concomitant]
     Active Substance: CARISOPRODOL
     Indication: PAIN
  7. HYDROCODONE [Concomitant]
     Active Substance: HYDROCODONE
     Indication: PAIN
     Dosage: UNK
     Dates: start: 2009

REACTIONS (11)
  - Medical device discomfort [None]
  - Back pain [None]
  - Abdominal pain [None]
  - Anxiety [None]
  - Embedded device [None]
  - Depression [None]
  - Device issue [None]
  - Cyst [None]
  - Medical device pain [None]
  - Injury [None]
  - Procedural pain [None]

NARRATIVE: CASE EVENT DATE: 201310
